FAERS Safety Report 6021822-X (Version None)
Quarter: 2008Q4

REPORT INFORMATION
  Report Type: 
  Country: None (occurrence: None)
  Receive Date: 20081223
  Receipt Date: 20081211
  Transmission Date: 20090506
  Serious: Yes (Other)
  Sender: FDA-Public Use
  Company Number: DSU-2008-02192

PATIENT
  Age: 54 Year
  Sex: Male
  Weight: 117.9352 kg

DRUGS (5)
  1. BENICAR HCT [Suspect]
     Indication: HYPERTENSION
     Dosage: 40/25 MG (QAM) ,PER ORAL
     Route: 048
     Dates: start: 20080801
  2. ATENOLOL [Suspect]
     Indication: HYPERTENSION
     Dosage: 50 MG (50 MG, QHS) ,PER ORAL
     Route: 048
     Dates: start: 20080901, end: 20081101
  3. EFFEXOR (VENLAFAXINE HYDROCHLORIDE) (VENLAFAXINE HYDROCHLORIDE) [Concomitant]
  4. VICODIN [Concomitant]
  5. CARISOPRODOL (CARISOPRODOL) (350 MILLIGRAM) (CARISOPRODOL) [Concomitant]

REACTIONS (10)
  - ASTHENIA [None]
  - BLOOD CHOLESTEROL INCREASED [None]
  - BLOOD PRESSURE INCREASED [None]
  - DISORIENTATION [None]
  - ECONOMIC PROBLEM [None]
  - HEADACHE [None]
  - MALAISE [None]
  - NO THERAPEUTIC RESPONSE [None]
  - PAIN [None]
  - REFUSAL OF TREATMENT BY PATIENT [None]
